FAERS Safety Report 8502790-5 (Version None)
Quarter: 2012Q3

REPORT INFORMATION
  Report Type: 
  Country: None (occurrence: None)
  Receive Date: 20120705
  Receipt Date: 20120705
  Transmission Date: 20120928
  Serious: Yes (Hospitalization)
  Sender: FDA-Public Use
  Company Number: None

PATIENT
  Age: 33 Year
  Sex: Female
  Weight: 61.2356 kg

DRUGS (1)
  1. GONAL-F 75IU GONAL-F [Suspect]
     Indication: IN VITRO FERTILISATION
     Dates: start: 20120413, end: 20120413

REACTIONS (9)
  - DIZZINESS [None]
  - HYPOAESTHESIA [None]
  - ABDOMINAL PAIN [None]
  - FEELING HOT [None]
  - LETHARGY [None]
  - LOSS OF CONSCIOUSNESS [None]
  - FEELING COLD [None]
  - FEELING ABNORMAL [None]
  - PAIN [None]
